FAERS Safety Report 6305967-2 (Version None)
Quarter: 2009Q3

REPORT INFORMATION
  Report Type: 
  Country: None (occurrence: None)
  Receive Date: 20090812
  Receipt Date: 20090807
  Transmission Date: 20100115
  Serious: Yes (Other)
  Sender: FDA-Public Use
  Company Number: BE-ASTRAZENECA-2009SE06322

PATIENT
  Age: 604 Month
  Sex: Male
  Weight: 72 kg

DRUGS (2)
  1. CRESTOR [Suspect]
     Indication: PROPHYLAXIS
     Route: 048
     Dates: end: 20090601
  2. ASAFLOW 80 [Concomitant]
     Indication: PROPHYLAXIS
     Dosage: 1 PER DAY
     Route: 048
     Dates: start: 20000101

REACTIONS (1)
  - TOXIC SKIN ERUPTION [None]
